FAERS Safety Report 9194282 (Version 1)
Quarter: 2013Q1

REPORT INFORMATION
  Report Type: Spontaneous
  Country: GB (occurrence: GB)
  Receive Date: 20130327
  Receipt Date: 20130327
  Transmission Date: 20140127
  Serious: Yes (Other)
  Sender: FDA-Public Use
  Company Number: GB-PFIZER INC-2013094168

PATIENT
  Age: 50 Year
  Sex: Female
  Weight: 106 kg

DRUGS (5)
  1. SERTRALINE HCL [Suspect]
     Indication: DEPRESSION
     Dosage: 50 MG, UNK
     Route: 048
  2. OLANZAPINE [Concomitant]
     Dosage: UNK
  3. SIMVASTATIN [Concomitant]
     Dosage: UNK
  4. VALPROATE SODIUM [Concomitant]
     Dosage: UNK
  5. PROCYCLIDINE [Concomitant]
     Dosage: UNK

REACTIONS (2)
  - Rectal haemorrhage [Recovering/Resolving]
  - Colitis ulcerative [Unknown]
